FAERS Safety Report 20840373 (Version 1)
Quarter: 2022Q2

REPORT INFORMATION
  Report Type: Report from Study
  Country: IT (occurrence: None)
  Receive Date: 20220517
  Receipt Date: 20220517
  Transmission Date: 20220720
  Serious: Yes (Other)
  Sender: FDA-Public Use
  Company Number: IT-ROCHE-3093194

PATIENT
  Age: 69 Year
  Sex: Female
  Weight: 65 kg

DRUGS (7)
  1. OCRELIZUMAB [Suspect]
     Active Substance: OCRELIZUMAB
     Indication: Progressive multiple sclerosis
     Dosage: AS PER RROTOCOL: INITIAL DOSE OF TWO 300-MG INFUSIONS SEPARATED BY 14 DAYS (ON DAYS 1 AND 15), AND T
     Route: 042
     Dates: start: 20190325
  2. BROMAZEPAM [Concomitant]
     Active Substance: BROMAZEPAM
     Route: 048
     Dates: start: 20190218
  3. LOBIDIUR [Concomitant]
     Active Substance: HYDROCHLOROTHIAZIDE\NEBIVOLOL HYDROCHLORIDE
     Indication: Hypertension
     Route: 048
  4. PFIZER-BIONTECH COVID-19 VACCINE [Concomitant]
     Active Substance: TOZINAMERAN
     Indication: Prophylaxis
     Dosage: THIS WAS FIRST DOSE. SECOND DOSE (0.3 ML) ON 24/SEP/2021.
     Route: 030
     Dates: start: 20210901, end: 20210901
  5. METHYLPREDNISOLONE [Concomitant]
     Active Substance: METHYLPREDNISOLONE
     Indication: Premedication
     Dosage: ADDITIONAL TREATMENT DATES: 08/APR/2019 (WEEK 2), 18/SEP/2019 (WEEK 24), 25/NOV/2020 (WEEK 72), 28/A
     Route: 042
     Dates: start: 20190325
  6. CHLORPHENIRAMINE MALEATE [Concomitant]
     Active Substance: CHLORPHENIRAMINE MALEATE
     Indication: Premedication
     Dosage: ADDITIONAL TREATMENT DATES: 08/APR/2019 (WEEK 2), 18/SEP/2019 (WEEK 24), 25/NOV/2020 (WEEK 72), 28/A
     Route: 030
     Dates: start: 20190325
  7. ACETAMINOPHEN [Concomitant]
     Active Substance: ACETAMINOPHEN
     Indication: Premedication
     Dosage: ADDITIONAL TREATMENT DATES: 08/APR/2019 (WEEK 2), 18/SEP/2019 (WEEK 24), 25/NOV/2020 (WEEK 72), 28/A
     Route: 048
     Dates: start: 20190325

REACTIONS (1)
  - Breast mass [Not Recovered/Not Resolved]

NARRATIVE: CASE EVENT DATE: 20220330
